FAERS Safety Report 4599881-0 (Version None)
Quarter: 2005Q1

REPORT INFORMATION
  Report Type: 
  Country: None (occurrence: None)
  Receive Date: 20050303
  Receipt Date: 20050210
  Transmission Date: 20050727
  Serious: Yes (Hospitalization, Other)
  Sender: FDA-Public Use
  Company Number: FR_050205828

PATIENT
  Age: 71 Year
  Sex: Female

DRUGS (4)
  1. GEMZAR [Suspect]
     Indication: PANCREATIC CARCINOMA
     Dates: start: 20040801
  2. INSULIN [Concomitant]
  3. TRANDATE [Concomitant]
  4. ALDACTONE [Concomitant]

REACTIONS (4)
  - ASCITES [None]
  - NECROSIS [None]
  - OEDEMA PERIPHERAL [None]
  - SKIN ULCER [None]
